FAERS Safety Report 6955734-1 (Version None)
Quarter: 2010Q3

REPORT INFORMATION
  Report Type: 
  Country: None (occurrence: None)
  Receive Date: 20100826
  Receipt Date: 20100826
  Transmission Date: 20110219
  Serious: Yes (Other)
  Sender: FDA-Public Use
  Company Number: None

PATIENT
  Age: 50 Year
  Sex: Female
  Weight: 63.5036 kg

DRUGS (1)
  1. FLUOCINONIDE [Suspect]
     Indication: DERMATITIS CONTACT
     Dosage: GEL 2X PER DAY CUTANEOUS
     Route: 003

REACTIONS (2)
  - AGGRESSION [None]
  - ANGER [None]
